FAERS Safety Report 16718074 (Version 1)
Quarter: 2019Q3

REPORT INFORMATION
  Report Type: Report from Study
  Country: JP (occurrence: JP)
  Receive Date: 20190819
  Receipt Date: 20190819
  Transmission Date: 20191005
  Serious: Yes (Hospitalization)
  Sender: FDA-Public Use
  Company Number: JP-ELI_LILLY_AND_COMPANY-JP201908005735

PATIENT
  Age: 73 Year
  Sex: Male
  Weight: 52 kg

DRUGS (11)
  1. IRINOTECAN [Concomitant]
     Active Substance: IRINOTECAN
     Indication: COLON CANCER
     Dosage: 230 MG, UNK
     Route: 041
     Dates: start: 20190130, end: 20190130
  2. FERROMIA [Concomitant]
     Active Substance: SODIUM FERROUS CITRATE
     Indication: ANAEMIA
     Dosage: 50 MG, UNK
     Route: 048
     Dates: start: 20190130
  3. OXALIPLATIN. [Concomitant]
     Active Substance: OXALIPLATIN
     Indication: COLON CANCER
     Dosage: 130 MG, UNK
     Route: 041
     Dates: start: 20190130, end: 20190130
  4. BETAMETHASONE. [Concomitant]
     Active Substance: BETAMETHASONE
     Indication: NEPHRITIS
     Dosage: 2 MG, UNK
     Route: 048
     Dates: start: 20180713
  5. CETUXIMAB. [Suspect]
     Active Substance: CETUXIMAB
     Dosage: 380 MG, UNK
     Route: 041
     Dates: start: 20190206, end: 20190206
  6. CETUXIMAB. [Suspect]
     Active Substance: CETUXIMAB
     Indication: COLON CANCER
     Dosage: 610 MG, UNK
     Route: 041
     Dates: start: 20190130, end: 20190130
  7. SPIRIVA [Concomitant]
     Active Substance: TIOTROPIUM BROMIDE MONOHYDRATE
     Indication: ASTHMA
     Dosage: -1 UNK, DAILY
     Route: 048
     Dates: start: 20181228
  8. 5-FU [FLUOROURACIL] [Concomitant]
     Active Substance: FLUOROURACIL
     Indication: COLON CANCER
     Dosage: 3600 MG, UNK
     Route: 041
     Dates: start: 20190130, end: 20190130
  9. URSODEOXYCHOLIC ACID [Concomitant]
     Active Substance: URSODIOL
     Indication: STASIS DERMATITIS
     Dosage: 300 MG, EVERY 8 HRS
     Route: 048
     Dates: start: 20180713
  10. LEVOFOLINATE CALCIUM [Concomitant]
     Active Substance: LEVOLEUCOVORIN CALCIUM
     Indication: COLON CANCER
     Dosage: 300 MG, UNK
     Route: 041
     Dates: start: 20190130, end: 20190130
  11. SYMBICORT [Concomitant]
     Active Substance: BUDESONIDE\FORMOTEROL FUMARATE DIHYDRATE
     Indication: ASTHMA
     Dosage: UNIT DOSE: 2 PUFFS
     Route: 048
     Dates: start: 20181226

REACTIONS (1)
  - Febrile neutropenia [Recovered/Resolved]

NARRATIVE: CASE EVENT DATE: 20190207
